FAERS Safety Report 15661051 (Version 2)
Quarter: 2020Q3

REPORT INFORMATION
  Report Type: Spontaneous
  Country: US (occurrence: US)
  Receive Date: 20181127
  Receipt Date: 20200828
  Transmission Date: 20201102
  Serious: Yes (Other)
  Sender: FDA-Public Use
  Company Number: US-GILEAD-2018-0376051

PATIENT
  Sex: Female
  Weight: 105.22 kg

DRUGS (11)
  1. STRIBILD [Suspect]
     Active Substance: COBICISTAT\ELVITEGRAVIR\EMTRICITABINE\TENOFOVIR DISOPROXIL FUMARATE
     Dosage: UNK
     Route: 048
     Dates: start: 20140904, end: 20190401
  2. TRUVADA [Suspect]
     Active Substance: EMTRICITABINE\TENOFOVIR DISOPROXIL FUMARATE
     Indication: HIV INFECTION
     Dosage: UNK
     Route: 048
     Dates: start: 20130725, end: 2014
  3. GABAPENTIN. [Concomitant]
     Active Substance: GABAPENTIN
  4. BANOPHEN [Concomitant]
     Active Substance: DIPHENHYDRAMINE HYDROCHLORIDE
  5. STRIBILD [Suspect]
     Active Substance: COBICISTAT\ELVITEGRAVIR\EMTRICITABINE\TENOFOVIR DISOPROXIL FUMARATE
     Indication: PRODUCT USED FOR UNKNOWN INDICATION
     Dosage: UNK
     Route: 048
     Dates: start: 2012
  6. NORVIR [Concomitant]
     Active Substance: RITONAVIR
  7. ATAZANAVIR. [Concomitant]
     Active Substance: ATAZANAVIR
     Indication: HIV INFECTION
  8. LEVETIRACETAM. [Concomitant]
     Active Substance: LEVETIRACETAM
  9. PRAVASTATIN. [Concomitant]
     Active Substance: PRAVASTATIN
  10. BIKTARVY [Concomitant]
     Active Substance: BICTEGRAVIR SODIUM\EMTRICITABINE\TENOFOVIR ALAFENAMIDE FUMARATE
  11. PREZISTA [Concomitant]
     Active Substance: DARUNAVIR ETHANOLATE

REACTIONS (12)
  - Protein urine present [Recovered/Resolved]
  - Osteoporosis [Unknown]
  - Bone disorder [Unknown]
  - Emotional distress [Unknown]
  - Anxiety [Unknown]
  - Anhedonia [Unknown]
  - Blood creatinine increased [Not Recovered/Not Resolved]
  - Micturition urgency [Unknown]
  - Unevaluable event [Unknown]
  - Spinal deformity [Unknown]
  - Pain [Unknown]
  - Economic problem [Unknown]

NARRATIVE: CASE EVENT DATE: 20140102
